FAERS Safety Report 5131246-5 (Version None)
Quarter: 2006Q4

REPORT INFORMATION
  Report Type: 
  Country: None (occurrence: None)
  Receive Date: 20061018
  Receipt Date: 20061018
  Transmission Date: 20070319
  Serious: Yes (Hospitalization)
  Sender: FDA-Public Use
  Company Number: None

PATIENT
  Age: 41 Year
  Sex: Female
  Weight: 68.0396 kg

DRUGS (2)
  1. PAXIL [Suspect]
     Indication: DEPRESSION
     Dosage: 20MG   ONCE DAILY   ORALLY
     Route: 048
     Dates: start: 20050601, end: 20050825
  2. NEURONTIN [Suspect]
     Dosage: 400MG   3 TIMES A DAY   ORALLY
     Route: 048
     Dates: start: 20050601, end: 20050825

REACTIONS (8)
  - DEPRESSION [None]
  - DRUG INEFFECTIVE [None]
  - GRAND MAL CONVULSION [None]
  - IMPAIRED WORK ABILITY [None]
  - NEGATIVE THOUGHTS [None]
  - PAIN [None]
  - SLEEP WALKING [None]
  - TONGUE BITING [None]
